FAERS Safety Report 9404900 (Version 1)
Quarter: 2013Q3

REPORT INFORMATION
  Report Type: Spontaneous
  Country: IT (occurrence: IT)
  Receive Date: 20130717
  Receipt Date: 20130717
  Transmission Date: 20140515
  Serious: Yes (Hospitalization)
  Sender: FDA-Public Use
  Company Number: IT-TEVA-417851ISR

PATIENT
  Age: 45 Year
  Sex: Male

DRUGS (4)
  1. PACLITAXEL TEVA [Suspect]
     Indication: ABDOMINAL NEOPLASM
     Route: 041
     Dates: start: 20130704, end: 20130704
  2. RANIDIL [Concomitant]
  3. TRIMETON [Concomitant]
  4. SOLDESAM [Concomitant]

REACTIONS (2)
  - Hypotension [Recovered/Resolved]
  - Choking sensation [Recovered/Resolved]
